FAERS Safety Report 4393623-X (Version None)
Quarter: 2004Q3

REPORT INFORMATION
  Report Type: 
  Country: None (occurrence: None)
  Receive Date: 20040709
  Receipt Date: 20040629
  Transmission Date: 20050211
  Serious: Yes (Hospitalization)
  Sender: FDA-Public Use
  Company Number: 200412227JP

PATIENT
  Age: 47 Year
  Sex: Female

DRUGS (1)
  1. LASIX [Suspect]
     Indication: OEDEMA
     Route: 048
     Dates: start: 19990101, end: 20040611

REACTIONS (4)
  - EOSINOPHILIA [None]
  - ERYTHEMA [None]
  - PRURITUS [None]
  - RASH GENERALISED [None]
